FAERS Safety Report 6833711-9 (Version None)
Quarter: 2010Q3

REPORT INFORMATION
  Report Type: 
  Country: None (occurrence: None)
  Receive Date: 20100712
  Receipt Date: 20070330
  Transmission Date: 20110219
  Serious: No
  Sender: FDA-Public Use
  Company Number: US-PFIZER INC-2007027314

PATIENT
  Age: 46 Year
  Sex: Female
  Weight: 51.71 kg

DRUGS (4)
  1. CHANTIX [Suspect]
     Indication: SMOKING CESSATION THERAPY
     Dates: start: 20070325
  2. ALPRAZOLAM [Concomitant]
  3. RELPAX [Concomitant]
  4. CLARITIN [Concomitant]

REACTIONS (3)
  - MIGRAINE [None]
  - PRURITUS [None]
  - URTICARIA [None]
